FAERS Safety Report 7295109-1 (Version None)
Quarter: 2011Q1

REPORT INFORMATION
  Report Type: 
  Country: None (occurrence: None)
  Receive Date: 20110216
  Receipt Date: 20030219
  Transmission Date: 20110831
  Serious: Yes (Hospitalization, Other)
  Sender: FDA-Public Use
  Company Number: US-JNJFOC-20100904767

PATIENT
  Sex: Female
  Weight: 83.92 kg

DRUGS (1)
  1. PROPULSID [Suspect]
     Indication: DYSPEPSIA
     Route: 065

REACTIONS (2)
  - CARDIAC DISORDER [None]
  - MYOCARDIAL ISCHAEMIA [None]
